FAERS Safety Report 13698024 (Version 1)
Quarter: 2017Q2

REPORT INFORMATION
  Report Type: Spontaneous
  Country: FR (occurrence: FR)
  Receive Date: 20170628
  Receipt Date: 20170628
  Transmission Date: 20170830
  Serious: Yes (Hospitalization)
  Sender: FDA-Public Use
  Company Number: FR-MYLANLABS-2017M1039159

PATIENT

DRUGS (6)
  1. URAPIDIL [Concomitant]
     Active Substance: URAPIDIL
     Indication: HYPERTENSION
     Dosage: 120 MG, QD
     Route: 048
  2. AVLOCARDYL                         /00030001/ [Suspect]
     Active Substance: PROPRANOLOL HYDROCHLORIDE
     Indication: OESOPHAGEAL VARICES HAEMORRHAGE
     Dosage: 40 MG, QD
     Route: 048
     Dates: start: 20170204, end: 20170204
  3. SPIRONOLACTONE. [Concomitant]
     Active Substance: SPIRONOLACTONE
     Indication: HYPERTENSION
     Dosage: 150 MG, QD
     Route: 048
  4. ISOPTINE L.P. 240 MG [Suspect]
     Active Substance: VERAPAMIL HYDROCHLORIDE
     Indication: HYPERTENSION
     Dosage: 240 MG, QD
     Route: 048
     Dates: end: 20170203
  5. CAPTOPRIL. [Concomitant]
     Active Substance: CAPTOPRIL
     Indication: HYPERTENSION
     Dosage: 12.5 MG, QD
     Route: 048
  6. FUROSEMIDE. [Concomitant]
     Active Substance: FUROSEMIDE
     Indication: HYPERTENSION
     Dosage: 40 MG, QD
     Route: 048

REACTIONS (1)
  - Conduction disorder [Recovered/Resolved]

NARRATIVE: CASE EVENT DATE: 20170204
